FAERS Safety Report 20516733 (Version 1)
Quarter: 2022Q1

REPORT INFORMATION
  Report Type: Spontaneous
  Country: US (occurrence: US)
  Receive Date: 20220225
  Receipt Date: 20220225
  Transmission Date: 20220424
  Serious: No
  Sender: FDA-Public Use
  Company Number: US-CELGENE-USA-20220205962

PATIENT
  Sex: Male
  Weight: 75.364 kg

DRUGS (2)
  1. REVLIMID [Suspect]
     Active Substance: LENALIDOMIDE
     Indication: Plasma cell myeloma
     Dosage: 15 MILLIGRAM
     Route: 048
     Dates: start: 20220126
  2. REVLIMID [Suspect]
     Active Substance: LENALIDOMIDE
     Dosage: 10 MILLIGRAM
     Route: 048
     Dates: start: 202202

REACTIONS (12)
  - Pollakiuria [Recovering/Resolving]
  - Restless legs syndrome [Recovering/Resolving]
  - Functional gastrointestinal disorder [Recovering/Resolving]
  - Gait disturbance [Recovering/Resolving]
  - Anal incontinence [Recovering/Resolving]
  - Groin pain [Recovering/Resolving]
  - Somnolence [Recovering/Resolving]
  - Pain in extremity [Recovering/Resolving]
  - Blood creatinine increased [Recovering/Resolving]
  - Nausea [Recovering/Resolving]
  - Insomnia [Recovering/Resolving]
  - Dyspepsia [Recovering/Resolving]

NARRATIVE: CASE EVENT DATE: 20220101
